FAERS Safety Report 6767689-3 (Version None)
Quarter: 2010Q2

REPORT INFORMATION
  Report Type: 
  Country: None (occurrence: None)
  Receive Date: 20100614
  Receipt Date: 20100607
  Transmission Date: 20101027
  Serious: Yes (Hospitalization)
  Sender: FDA-Public Use
  Company Number: FR-ROCHE-645524

PATIENT
  Sex: Female
  Weight: 25.1 kg

DRUGS (23)
  1. BEVACIZUMAB [Suspect]
     Indication: SARCOMA
     Dosage: DOSE FORM: 7.5 MG/KG
     Route: 042
     Dates: start: 20090605
  2. BEVACIZUMAB [Suspect]
     Dosage: DOSAGE FORM: 7.5 MG/KG
     Route: 042
     Dates: start: 20090623, end: 20090721
  3. BEVACIZUMAB [Suspect]
     Dosage: DOSAGE FORM: 7.5 MG/KG
     Route: 042
     Dates: start: 20090730
  4. BEVACIZUMAB [Suspect]
     Dosage: DOSAGE FORM: 7.5 MG/KG, LAST DOSE PRIOR TO SAE: 19 AUG 2009
     Route: 042
  5. BEVACIZUMAB [Suspect]
     Dosage: DOSAGE FORM: 7.5 MG/KG, LAST DOSE PRIOR TO SAE: 29 SEPTEMBER 2009.
     Route: 042
  6. DACTINOMYCINE [Suspect]
     Indication: SARCOMA
     Dosage: DOSE FORM: 1.5 MG/M2
     Route: 042
     Dates: start: 20090605
  7. DACTINOMYCINE [Suspect]
     Dosage: DOSAGE FORM: 1.5MG/M2
     Route: 042
     Dates: start: 20090629
  8. DACTINOMYCINE [Suspect]
     Dosage: DOSAGE FORM: 1.5MG/M2
     Route: 042
     Dates: start: 20090721
  9. DACTINOMYCINE [Suspect]
     Dosage: DOSAGE FORM: 1.5MG/M2, ROUTE: IVD
     Route: 042
  10. DOXORUBICIN HCL [Suspect]
     Indication: SARCOMA
     Dosage: DOSAGE FORM: 60 MG/M2
     Route: 042
     Dates: start: 20090605, end: 20090629
  11. DOXORUBICIN HCL [Suspect]
     Dosage: DOSAGE FORM: 60 MG/M2
     Route: 042
     Dates: start: 20090730
  12. IFOSFAMIDE [Suspect]
     Indication: SARCOMA
     Dosage: DOSE FORM: 6 G/M2
     Route: 042
     Dates: start: 20090605, end: 20090629
  13. IFOSFAMIDE [Suspect]
     Dosage: DOSAGE FORM: 6G/M2
     Route: 042
     Dates: start: 20090730
  14. IFOSFAMIDE [Suspect]
     Dosage: DOSAGE FORM: 6G/M2, DATE OF LAST DOSE PRIOR TO SAE: 29 SEPTEMBER 2009.
     Route: 042
  15. VINCRISTINE [Suspect]
     Indication: SARCOMA
     Dosage: DOSE FORM: 1.5 MG/M2
     Route: 042
     Dates: start: 20090605
  16. VINCRISTINE [Suspect]
     Dosage: DOSE FORM: 1.5MG/M2
     Route: 042
     Dates: start: 20090721
  17. VINCRISTINE [Suspect]
     Dosage: DOSE FORM: 1.5MG/M2, LAST DOSE PRIOR TO SAE: 19 JULY 2009, ROUTE: IVD
     Route: 042
  18. VINCRISTINE [Suspect]
     Dosage: DOSE FORM: 1.5MG/M2, LAST DOSE PRIOR TO SAE: 29 SEPTEMBER 2009
     Route: 042
  19. MOPRAL [Concomitant]
     Dates: start: 20090615
  20. BACTRIM [Concomitant]
     Dosage: TOTAL DAILY DOSE: 3 X 860 MG/WEEK.
     Dates: start: 20090605
  21. TRIFLUCAN [Concomitant]
     Dates: start: 20090804, end: 20090824
  22. ATARAX [Concomitant]
     Dosage: REPORTED AS: ATAXAX (IF NECESSARY). TOTAL DAILY DOSE: 25 MG X 2
     Dates: start: 20090605
  23. PARACETAMOL [Concomitant]
     Dosage: REPORTED AS PARACETAMOL (IF NECESSARY). TOTAL DAILY DOSE: 300 MG X 4.
     Dates: start: 20090605

REACTIONS (2)
  - CARDIAC DISORDER [None]
  - FEBRILE BONE MARROW APLASIA [None]
